FAERS Safety Report 13631382 (Version 4)
Quarter: 2017Q3

REPORT INFORMATION
  Report Type: Spontaneous
  Country: SE (occurrence: SE)
  Receive Date: 20170608
  Receipt Date: 20170808
  Transmission Date: 20171127
  Serious: Yes (Other)
  Sender: FDA-Public Use
  Company Number: SE-009507513-1705SWE015713

PATIENT
  Age: 21 Year
  Sex: Female

DRUGS (6)
  1. NEXPLANON [Suspect]
     Active Substance: ETONOGESTREL
     Dosage: 1 IMPLANT, UNK
     Route: 059
     Dates: start: 20140505, end: 20170519
  2. THERALEN [Concomitant]
     Active Substance: TRIMEPRAZINE
     Indication: SLEEP DISORDER
     Dosage: UNK
     Dates: start: 201612, end: 201704
  3. PROPAVAN [Concomitant]
     Active Substance: PROPIOMAZINE
     Indication: SLEEP DISORDER
     Dosage: UNK
     Dates: start: 201612, end: 201704
  4. NEXPLANON [Suspect]
     Active Substance: ETONOGESTREL
     Indication: CONTRACEPTION
     Dosage: 1 IMPLANT, UNK
     Route: 059
  5. NEXPLANON [Suspect]
     Active Substance: ETONOGESTREL
     Dosage: 1 IMPLANT, UNK
     Route: 059
     Dates: start: 20170519
  6. PROMETHAZINE [Concomitant]
     Active Substance: PROMETHAZINE\PROMETHAZINE HYDROCHLORIDE
     Indication: SLEEP DISORDER
     Dosage: UNK
     Dates: start: 201612, end: 201704

REACTIONS (7)
  - Pregnancy with implant contraceptive [Recovered/Resolved]
  - Dysmenorrhoea [Unknown]
  - Product quality issue [Unknown]
  - Menometrorrhagia [Recovering/Resolving]
  - Hypomenorrhoea [Recovered/Resolved]
  - Abortion spontaneous [Recovered/Resolved]
  - Unintended pregnancy [Recovered/Resolved]

NARRATIVE: CASE EVENT DATE: 20140505
